FAERS Safety Report 14084307 (Version 6)
Quarter: 2018Q1

REPORT INFORMATION
  Report Type: Spontaneous
  Country: US (occurrence: US)
  Receive Date: 20171013
  Receipt Date: 20180216
  Transmission Date: 20180508
  Serious: Yes (Congenital Anomaly, Other)
  Sender: FDA-Public Use
  Company Number: PHEH2017US032880

PATIENT
  Sex: Male

DRUGS (2)
  1. ZOFRAN ODT [Suspect]
     Active Substance: ONDANSETRON HYDROCHLORIDE
     Indication: FOETAL EXPOSURE DURING PREGNANCY
     Dosage: MOTHER DOSE: 04 MG
     Route: 064
  2. ZOFRAN [Suspect]
     Active Substance: ONDANSETRON HYDROCHLORIDE
     Indication: FOETAL EXPOSURE DURING PREGNANCY
     Dosage: MOTHER DOSE: 08 MG
     Route: 064

REACTIONS (82)
  - Micrognathia [Unknown]
  - Intestinal obstruction [Unknown]
  - Tracheal stenosis [Unknown]
  - Gastric fistula [Unknown]
  - Pneumonia [Unknown]
  - Nasal congestion [Unknown]
  - Poor feeding infant [Unknown]
  - Cough [Unknown]
  - Rhinorrhoea [Unknown]
  - Bronchitis [Unknown]
  - Rash [Unknown]
  - Pyrexia [Unknown]
  - Eye disorder [Unknown]
  - Atrial septal defect [Unknown]
  - Deafness [Unknown]
  - Infantile apnoea [Recovered/Resolved]
  - Hypoxia [Unknown]
  - Developmental delay [Unknown]
  - Middle ear effusion [Unknown]
  - Vomiting [Unknown]
  - Cerumen impaction [Unknown]
  - Gastroenteritis [Unknown]
  - Upper respiratory tract infection [Unknown]
  - Conjunctivitis [Unknown]
  - Dysmorphism [Unknown]
  - Autism spectrum disorder [Unknown]
  - Injury [Unknown]
  - Tracheitis [Unknown]
  - Hypercapnia [Recovered/Resolved]
  - Bronchial hyperreactivity [Unknown]
  - Contusion [Unknown]
  - Ear pain [Unknown]
  - Dyspnoea [Unknown]
  - Congenital anomaly [Unknown]
  - Failure to thrive [Unknown]
  - Respiratory distress [Unknown]
  - Foetal exposure during pregnancy [Unknown]
  - Metabolic alkalosis [Unknown]
  - Decreased appetite [Unknown]
  - Pharyngitis [Unknown]
  - Viral infection [Unknown]
  - Pharyngitis streptococcal [Unknown]
  - Malocclusion [Unknown]
  - Constipation [Unknown]
  - Wheezing [Unknown]
  - Cleft palate [Unknown]
  - Pierre Robin syndrome [Unknown]
  - Skull malformation [Unknown]
  - Otitis media chronic [Unknown]
  - Intellectual disability [Unknown]
  - Velopharyngeal incompetence [Unknown]
  - Dysphagia [Unknown]
  - Stridor [Unknown]
  - Weight gain poor [Unknown]
  - Dermatitis atopic [Unknown]
  - Abnormal behaviour [Unknown]
  - Ear infection [Unknown]
  - Erythema [Unknown]
  - Craniocerebral injury [Unknown]
  - Attention deficit/hyperactivity disorder [Unknown]
  - Gastrooesophageal reflux disease [Unknown]
  - Speech disorder [Unknown]
  - Rhinitis allergic [Unknown]
  - Polyuria [Unknown]
  - Microgenia [Unknown]
  - Atelectasis neonatal [Unknown]
  - Choking [Unknown]
  - Hypokalaemia [Unknown]
  - Astigmatism [Unknown]
  - Glossoptosis [Unknown]
  - Hyponatraemia [Unknown]
  - Dehydration [Unknown]
  - Asthma [Unknown]
  - Enuresis [Unknown]
  - Sleep apnoea syndrome [Unknown]
  - Otitis media [Unknown]
  - Congenital flat feet [Unknown]
  - Upper airway obstruction [Unknown]
  - Bronchiolitis [Unknown]
  - Dental caries [Unknown]
  - Otorrhoea [Unknown]
  - Sensory disturbance [Unknown]
